FAERS Safety Report 8555416-9 (Version None)
Quarter: 2012Q3

REPORT INFORMATION
  Report Type: 
  Country: None (occurrence: None)
  Receive Date: 20120731
  Receipt Date: 20111021
  Transmission Date: 20120928
  Serious: No
  Sender: FDA-Public Use
  Company Number: US-ASTRAZENECA-2011SE36399

PATIENT
  Age: 58 Year
  Sex: Female
  Weight: 104.3 kg

DRUGS (12)
  1. SEROQUEL XR [Suspect]
     Indication: SLEEP APNOEA SYNDROME
     Route: 048
     Dates: start: 20090101
  2. SEROQUEL XR [Suspect]
     Indication: SUICIDAL IDEATION
     Route: 048
     Dates: start: 20090101
  3. METOPROLOL TARTRATE [Concomitant]
     Indication: BLOOD PRESSURE ABNORMAL
     Route: 065
  4. SEROQUEL XR [Suspect]
     Route: 048
  5. METOPROLOL TARTRATE [Concomitant]
     Route: 065
  6. SEROQUEL XR [Suspect]
     Route: 048
  7. SEROQUEL XR [Suspect]
     Route: 048
  8. SEROQUEL XR [Suspect]
     Indication: THINKING ABNORMAL
     Route: 048
     Dates: start: 20090101
  9. SEROQUEL XR [Suspect]
     Indication: BIPOLAR DISORDER
     Route: 048
     Dates: start: 20090101
  10. CLONAZEPAM [Concomitant]
     Indication: ANXIETY
     Route: 065
  11. SEROQUEL XR [Suspect]
     Route: 048
  12. SERTRALINE HYDROCHLORIDE [Concomitant]
     Route: 065

REACTIONS (9)
  - JOINT SWELLING [None]
  - WEIGHT INCREASED [None]
  - MORBID THOUGHTS [None]
  - DEMENTIA [None]
  - DRUG INEFFECTIVE FOR UNAPPROVED INDICATION [None]
  - INSOMNIA [None]
  - DRUG DOSE OMISSION [None]
  - OFF LABEL USE [None]
  - SOMNAMBULISM [None]
